FAERS Safety Report 11736902 (Version 18)
Quarter: 2018Q3

REPORT INFORMATION
  Report Type: Report from Study
  Country: KR (occurrence: KR)
  Receive Date: 20151113
  Receipt Date: 20180904
  Transmission Date: 20181010
  Serious: Yes (Hospitalization)
  Sender: FDA-Public Use
  Company Number: KR-ROCHE-1642981

PATIENT
  Age: 64 Year
  Sex: Female
  Weight: 51.6 kg

DRUGS (95)
  1. BACTROBAN [Concomitant]
     Active Substance: MUPIROCIN\MUPIROCIN CALCIUM
     Route: 061
     Dates: start: 20151118, end: 20151124
  2. PENIRAMIN [Concomitant]
     Indication: PRURITUS
     Route: 042
     Dates: start: 20151204, end: 20151204
  3. PENIRAMIN [Concomitant]
     Route: 042
     Dates: start: 20151218, end: 20151218
  4. NEURONTIN (SOUTH KOREA) [Concomitant]
     Route: 048
     Dates: start: 20160109, end: 20160109
  5. NEXIUM [Concomitant]
     Active Substance: ESOMEPRAZOLE MAGNESIUM
     Indication: DYSPEPSIA
     Route: 048
     Dates: start: 20151203, end: 20160128
  6. TOPISOL [Concomitant]
     Indication: RASH
     Route: 061
     Dates: start: 20151118, end: 20151124
  7. PHOSTEN [Concomitant]
     Indication: HYPOPHOSPHATAEMIA
     Route: 042
     Dates: start: 20160110, end: 20160110
  8. TROPHERINE [Concomitant]
     Dosage: INDICATION? USED TO CHECK EYE
     Route: 047
     Dates: start: 20150919, end: 20150919
  9. HEPARIN [Concomitant]
     Active Substance: HEPARIN SODIUM
     Indication: PROPHYLAXIS
     Route: 042
     Dates: start: 20160110, end: 20160111
  10. ULTIVA [Concomitant]
     Active Substance: REMIFENTANIL HYDROCHLORIDE
     Indication: PROPHYLAXIS
     Route: 042
     Dates: start: 20160110, end: 20160114
  11. COBIMETINIB. [Suspect]
     Active Substance: COBIMETINIB
     Indication: BREAST CANCER METASTATIC
     Dosage: MOST RECENT DOSE PRIOR TO THE EVENTS WAS RECEIVED ON 05/OCT/2015, 03/DEC/2015 AND 08/JAN/2016.
     Route: 048
     Dates: start: 20150926, end: 20151005
  12. MACPERAN [Concomitant]
     Active Substance: METOCLOPRAMIDE HYDROCHLORIDE
     Route: 048
     Dates: start: 20151201, end: 20151205
  13. MIDAZOLAM [Concomitant]
     Active Substance: MIDAZOLAM HYDROCHLORIDE
     Indication: BRONCHOSCOPY
     Route: 042
     Dates: start: 20151209, end: 20151209
  14. PHOSTEN [Concomitant]
     Route: 042
     Dates: start: 20160112, end: 20160114
  15. TRAVOCORT [Concomitant]
     Indication: RASH
     Route: 061
     Dates: start: 20160120, end: 20160123
  16. MORPHINE HCL [Concomitant]
     Active Substance: MORPHINE HYDROCHLORIDE
     Indication: MYALGIA
     Route: 042
     Dates: start: 20151005, end: 20151019
  17. PROAMINE [Concomitant]
     Indication: DECREASED APPETITE
     Route: 042
     Dates: start: 20160108, end: 20160108
  18. HUMULIN R [Concomitant]
     Active Substance: INSULIN HUMAN
     Route: 058
     Dates: start: 20160113, end: 20160113
  19. ETOMIDATE. [Concomitant]
     Active Substance: ETOMIDATE
     Indication: BRONCHOSCOPY
     Route: 042
     Dates: start: 20160110, end: 20160110
  20. WINUF PERI [Concomitant]
     Route: 042
     Dates: start: 20160116, end: 20160117
  21. SODIUM BICARBONATE. [Concomitant]
     Active Substance: SODIUM BICARBONATE
     Indication: STOMATITIS
     Route: 050
     Dates: start: 20150916, end: 20160122
  22. XYZAL [Concomitant]
     Active Substance: LEVOCETIRIZINE DIHYDROCHLORIDE
     Indication: PRURITUS
     Route: 048
     Dates: start: 20151206, end: 20151226
  23. PHOSTEN [Concomitant]
     Indication: HYPOKALAEMIA
     Route: 042
     Dates: start: 20151210, end: 20151210
  24. MAGNESIUM SULFATE. [Concomitant]
     Active Substance: MAGNESIUM SULFATE
     Indication: HYPOMAGNESAEMIA
     Route: 042
     Dates: start: 20151008, end: 20151008
  25. MORPHINE HCL [Concomitant]
     Active Substance: MORPHINE HYDROCHLORIDE
     Route: 042
     Dates: start: 20160114, end: 20160114
  26. TERRAMYCIN OPHTH [Concomitant]
     Indication: NASAL INFLAMMATION
     Route: 061
     Dates: start: 20160108, end: 20160125
  27. PROAMINE [Concomitant]
     Route: 042
     Dates: start: 20151201, end: 20151201
  28. LEVOPHED [Concomitant]
     Active Substance: NOREPINEPHRINE BITARTRATE
     Indication: PROPHYLAXIS
     Route: 042
     Dates: start: 20160110, end: 20160112
  29. MIDAZOLAM [Concomitant]
     Active Substance: MIDAZOLAM HYDROCHLORIDE
     Indication: BRONCHOSCOPY
     Route: 042
     Dates: start: 20160110, end: 20160110
  30. PERAMIFLU [Concomitant]
     Active Substance: PERAMIVIR
     Indication: PROPHYLAXIS
     Route: 042
     Dates: start: 20160110, end: 20160112
  31. PHOSTEN [Concomitant]
     Indication: HYPOPHOSPHATAEMIA
     Route: 042
     Dates: start: 20160110, end: 20160110
  32. SEROQUEL [Concomitant]
     Active Substance: QUETIAPINE FUMARATE
     Indication: PROPHYLAXIS
     Route: 030
     Dates: start: 20160111, end: 20160111
  33. HUMULIN R [Concomitant]
     Active Substance: INSULIN HUMAN
     Indication: HYPERGLYCAEMIA
     Route: 042
     Dates: start: 20160111, end: 20160112
  34. WINUF PERI [Concomitant]
     Indication: SUPPORTIVE CARE
     Route: 042
     Dates: start: 20160118, end: 20160120
  35. BACTROBAN [Concomitant]
     Active Substance: MUPIROCIN\MUPIROCIN CALCIUM
     Indication: STOMATITIS
     Route: 061
     Dates: start: 20150916, end: 20160122
  36. BACTROBAN [Concomitant]
     Active Substance: MUPIROCIN\MUPIROCIN CALCIUM
     Route: 061
     Dates: start: 20160109, end: 20160109
  37. DEXAMETHASONE. [Concomitant]
     Active Substance: DEXAMETHASONE
     Indication: PREMEDICATION
     Route: 042
     Dates: start: 20150924, end: 20151230
  38. ACTIQ [Concomitant]
     Active Substance: FENTANYL CITRATE
     Indication: STOMATITIS
     Route: 061
     Dates: start: 20151112, end: 20160125
  39. TOPISOL [Concomitant]
     Indication: PRURITUS
     Route: 061
     Dates: start: 20151208, end: 20151226
  40. AZEPTIN (SOUTH KOREA) [Concomitant]
     Indication: PRURITUS
     Route: 048
     Dates: start: 20151208, end: 20151226
  41. RED BLOOD CELLS [Concomitant]
     Active Substance: HUMAN RED BLOOD CELL
     Indication: ANAEMIA
     Route: 065
     Dates: start: 20151205, end: 20151205
  42. TROPHERINE [Concomitant]
     Dosage: INDICATION? USED TO CHECK EYE
     Route: 047
     Dates: start: 20150921, end: 20150921
  43. TROPHERINE [Concomitant]
     Route: 047
     Dates: start: 20160108, end: 20160108
  44. MORPHINE HCL [Concomitant]
     Active Substance: MORPHINE HYDROCHLORIDE
     Indication: PROPHYLAXIS
     Route: 042
     Dates: start: 20160117, end: 20160122
  45. TARGOCID [Concomitant]
     Active Substance: TEICOPLANIN
     Route: 042
     Dates: start: 20160112, end: 20160116
  46. NIMBEX [Concomitant]
     Active Substance: CISATRACURIUM BESYLATE
     Indication: PROPHYLAXIS
     Route: 042
     Dates: start: 20160110, end: 20160111
  47. PHOSTEN [Concomitant]
     Route: 042
     Dates: start: 20160112, end: 20160114
  48. PANTOLOC [Concomitant]
     Active Substance: PANTOPRAZOLE SODIUM
     Route: 048
     Dates: start: 20160122, end: 20160129
  49. HUMULIN R [Concomitant]
     Active Substance: INSULIN HUMAN
     Route: 058
     Dates: start: 20160115, end: 20160115
  50. FRESOFOL MCT [Concomitant]
     Indication: SUPPORTIVE CARE
     Route: 042
     Dates: start: 20160111, end: 20160112
  51. GASTER (SOUTH KOREA) [Concomitant]
     Indication: PROPHYLAXIS
     Route: 048
     Dates: start: 20151218, end: 20151218
  52. MACPERAN [Concomitant]
     Active Substance: METOCLOPRAMIDE HYDROCHLORIDE
     Route: 048
     Dates: start: 20151119, end: 20151122
  53. ARESTAL [Concomitant]
     Active Substance: LOPERAMIDE OXIDE
     Indication: DIARRHOEA
     Route: 048
     Dates: start: 20160108, end: 20160110
  54. IRCODON [Concomitant]
     Active Substance: OXYCODONE HYDROCHLORIDE
     Indication: MYALGIA
     Route: 048
     Dates: start: 20160108, end: 20160109
  55. TAMIFLU [Concomitant]
     Active Substance: OSELTAMIVIR PHOSPHATE
     Indication: PROPHYLAXIS
     Route: 048
     Dates: start: 20160108, end: 20160110
  56. HUMULIN R [Concomitant]
     Active Substance: INSULIN HUMAN
     Route: 058
     Dates: start: 20160116, end: 20160122
  57. BACTROBAN [Concomitant]
     Active Substance: MUPIROCIN\MUPIROCIN CALCIUM
     Indication: RASH
     Route: 061
     Dates: start: 20151115
  58. PENIRAMIN [Concomitant]
     Route: 042
     Dates: start: 20151203, end: 20151203
  59. STILNOX [Concomitant]
     Active Substance: ZOLPIDEM TARTRATE
     Indication: INSOMNIA
     Route: 048
     Dates: start: 20151007, end: 20160222
  60. VASELINE PURE [Concomitant]
     Active Substance: PETROLATUM
     Indication: RASH
     Route: 061
     Dates: start: 20151205, end: 20151226
  61. EBASTEL [Concomitant]
     Active Substance: EBASTINE
     Indication: PRURITUS
     Route: 048
     Dates: start: 20151208, end: 20151226
  62. PHOSTEN [Concomitant]
     Route: 042
     Dates: start: 20160115, end: 20160115
  63. ALBUMIN [Concomitant]
     Active Substance: ALBUMIN HUMAN
     Route: 042
     Dates: start: 20160115, end: 20160115
  64. HUMULIN R [Concomitant]
     Active Substance: INSULIN HUMAN
     Route: 058
     Dates: start: 20160113, end: 20160113
  65. HUMULIN R [Concomitant]
     Active Substance: INSULIN HUMAN
     Route: 058
     Dates: start: 20160115, end: 20160115
  66. HEXAMEDINE [Concomitant]
     Indication: STOMATITIS
     Route: 050
     Dates: start: 20160111, end: 20160122
  67. PACLITAXEL. [Suspect]
     Active Substance: PACLITAXEL
     Indication: BREAST CANCER METASTATIC
     Dosage: MOST RECENT DOSE PRIOR TO THE EVENTS WAS RECEIVED ON 02/OCT/2015 (120 MG), 25/NOV/2015 (95 MG) AND 3
     Route: 042
     Dates: start: 20150924
  68. VASOPRESSIN. [Concomitant]
     Active Substance: VASOPRESSIN
     Indication: PROPHYLAXIS
     Route: 042
     Dates: start: 20160111, end: 20160111
  69. ELOCOM [Concomitant]
     Active Substance: MOMETASONE FUROATE
     Indication: PRURITUS
     Route: 061
     Dates: start: 20151208, end: 20151226
  70. ELOCOM [Concomitant]
     Active Substance: MOMETASONE FUROATE
     Indication: RASH
     Route: 061
     Dates: start: 20151118, end: 20151124
  71. DEXAMETHASONE. [Concomitant]
     Active Substance: DEXAMETHASONE
     Indication: STOMATITIS
     Route: 050
     Dates: start: 20151112, end: 20160128
  72. NEURONTIN (SOUTH KOREA) [Concomitant]
     Indication: PERIPHERAL SENSORY NEUROPATHY
     Route: 048
     Dates: start: 20151203, end: 20151210
  73. ALLEGRA [Concomitant]
     Active Substance: FEXOFENADINE HYDROCHLORIDE
     Indication: RASH
     Route: 048
     Dates: start: 20151215, end: 20151226
  74. LIDOCAINE. [Concomitant]
     Active Substance: LIDOCAINE
     Indication: STOMATITIS
     Route: 050
     Dates: start: 20151112, end: 20160128
  75. MACPERAN [Concomitant]
     Active Substance: METOCLOPRAMIDE HYDROCHLORIDE
     Indication: NAUSEA
     Route: 042
     Dates: start: 20151204, end: 20151211
  76. FUCIDINE [Concomitant]
     Active Substance: FUSIDIC ACID
     Indication: RASH
     Route: 061
     Dates: start: 20151205, end: 20151226
  77. AZEPTIN (SOUTH KOREA) [Concomitant]
     Indication: RASH
     Route: 048
     Dates: start: 20151118, end: 20151124
  78. MAGNESIUM SULFATE. [Concomitant]
     Active Substance: MAGNESIUM SULFATE
     Route: 042
     Dates: start: 20160111, end: 20160111
  79. TROPHERINE [Concomitant]
     Route: 047
     Dates: start: 20151019, end: 20151019
  80. ALBUMIN [Concomitant]
     Active Substance: ALBUMIN HUMAN
     Route: 042
     Dates: start: 20160112, end: 20160112
  81. HUMULIN R [Concomitant]
     Active Substance: INSULIN HUMAN
     Route: 058
     Dates: start: 20160116, end: 20160116
  82. LASIX [Concomitant]
     Active Substance: FUROSEMIDE
     Indication: PROPHYLAXIS
     Route: 042
     Dates: start: 20160111, end: 20160112
  83. PACLITAXEL. [Suspect]
     Active Substance: PACLITAXEL
     Route: 042
  84. PENIRAMIN [Concomitant]
     Indication: PREMEDICATION
     Route: 042
     Dates: start: 20150924, end: 20151230
  85. CURAN [Concomitant]
     Active Substance: RANITIDINE HYDROCHLORIDE
     Indication: PREMEDICATION
     Route: 042
     Dates: start: 20150924, end: 20151230
  86. ALLEGRA [Concomitant]
     Active Substance: FEXOFENADINE HYDROCHLORIDE
     Indication: PRURITUS
     Route: 048
     Dates: start: 20151218, end: 20151226
  87. ENAFON [Concomitant]
     Indication: HEADACHE
     Route: 048
     Dates: start: 20151215, end: 20151226
  88. TRAVOCORT [Concomitant]
     Indication: PRURITUS
     Route: 061
     Dates: start: 20151216, end: 20160226
  89. TARGOCID [Concomitant]
     Active Substance: TEICOPLANIN
     Indication: PROPHYLAXIS
     Route: 067
     Dates: start: 20160110, end: 20160111
  90. FENTANYL CITRATE. [Concomitant]
     Active Substance: FENTANYL CITRATE
     Indication: PROPHYLAXIS
     Route: 042
     Dates: start: 20160110, end: 20160112
  91. POTASSIUM CHLORIDE. [Concomitant]
     Active Substance: POTASSIUM CHLORIDE
     Indication: HYPOKALAEMIA
     Route: 042
     Dates: start: 20160110, end: 20160110
  92. PANTOLOC [Concomitant]
     Active Substance: PANTOPRAZOLE SODIUM
     Indication: PROPHYLAXIS
     Route: 042
     Dates: start: 20160110, end: 20160120
  93. ALBUMIN [Concomitant]
     Active Substance: ALBUMIN HUMAN
     Indication: HYPOALBUMINAEMIA
     Route: 042
     Dates: start: 20160110, end: 20160110
  94. HUMULIN R [Concomitant]
     Active Substance: INSULIN HUMAN
     Route: 058
     Dates: start: 20160114, end: 20160114
  95. EASYEF [Concomitant]
     Indication: RASH
     Route: 061
     Dates: start: 20160119, end: 20160120

REACTIONS (5)
  - Pneumonia [Recovered/Resolved]
  - Pneumonitis [Recovered/Resolved]
  - Respiratory failure [Recovered/Resolved]
  - Febrile neutropenia [Recovered/Resolved]
  - Ejection fraction decreased [Recovered/Resolved]

NARRATIVE: CASE EVENT DATE: 20151005
